FAERS Safety Report 7599623-0 (Version None)
Quarter: 2011Q3

REPORT INFORMATION
  Report Type: 
  Country: None (occurrence: None)
  Receive Date: 20110711
  Receipt Date: 20110629
  Transmission Date: 20111222
  Serious: Yes (Other)
  Sender: FDA-Public Use
  Company Number: US-SHIRE-ALL1-2011-02068

PATIENT
  Sex: Male
  Weight: 99.773 kg

DRUGS (3)
  1. ADDERALL XR 10 [Suspect]
     Indication: ATTENTION DEFICIT/HYPERACTIVITY DISORDER
     Dosage: 1X/DAY:QD (UNKNOWN MG CAPSULES TO EQUAL 120 MG AXR DAILY)
     Route: 048
  2. ADDERALL XR 10 [Suspect]
     Indication: BIPOLAR DISORDER
     Dosage: MG, 1X/DAY:QD (UNKNOWN MG CAPSULES TO EQUAL 80 MG AXR DAILY)
     Route: 048
     Dates: end: 20110101
  3. LITHIUM [Concomitant]
     Indication: AFFECTIVE DISORDER
     Dosage: 1200 MG, 1X/DAY:QD
     Route: 048

REACTIONS (10)
  - SELF INJURIOUS BEHAVIOUR [None]
  - IMPULSIVE BEHAVIOUR [None]
  - HYPERTENSION [None]
  - GOUT [None]
  - SUICIDAL IDEATION [None]
  - JOINT INJURY [None]
  - MOOD ALTERED [None]
  - AGGRESSION [None]
  - OVERDOSE [None]
  - ARTHRITIS [None]
